FAERS Safety Report 22162130 (Version 1)
Quarter: 2023Q1

REPORT INFORMATION
  Report Type: Spontaneous
  Country: US (occurrence: US)
  Receive Date: 20230331
  Receipt Date: 20230331
  Transmission Date: 20230418
  Serious: Yes (Other)
  Sender: FDA-Public Use
  Company Number: US-INCYTE CORPORATION-2023IN003072

PATIENT

DRUGS (9)
  1. JAKAFI [Suspect]
     Active Substance: RUXOLITINIB
     Indication: Polycythaemia vera
     Dosage: UNK
     Route: 065
     Dates: start: 201908, end: 202002
  2. JAKAFI [Suspect]
     Active Substance: RUXOLITINIB
     Dosage: UNK
     Route: 065
     Dates: start: 202205, end: 202208
  3. JAKAFI [Suspect]
     Active Substance: RUXOLITINIB
     Dosage: UNK
     Route: 065
     Dates: start: 2023
  4. PEGASYS [Suspect]
     Active Substance: PEGINTERFERON ALFA-2A
     Indication: Polycythaemia vera
     Dosage: 45 MICROGRAM, WEEKLY
     Route: 065
     Dates: start: 201908, end: 201908
  5. PEGASYS [Suspect]
     Active Substance: PEGINTERFERON ALFA-2A
     Dosage: 45 MICROGRAM, 2X/MONTH (EVERY 2 WEEKS)
     Route: 065
     Dates: end: 202004
  6. PEGASYS [Suspect]
     Active Substance: PEGINTERFERON ALFA-2A
     Dosage: 45 MICROGRAM, 2X/MONTH (EVERY 2 WEEKS)
     Route: 065
     Dates: start: 202006, end: 2023
  7. HYDROXYUREA [Suspect]
     Active Substance: HYDROXYUREA
     Dosage: UNK
     Route: 065
     Dates: start: 2020, end: 2021
  8. HYDROXYUREA [Suspect]
     Active Substance: HYDROXYUREA
     Dosage: UNK
     Route: 065
     Dates: end: 202204
  9. HYDROXYUREA [Suspect]
     Active Substance: HYDROXYUREA
     Dosage: UNK
     Route: 065
     Dates: start: 2023, end: 2023

REACTIONS (15)
  - Hepatitis [Unknown]
  - Angina pectoris [Recovered/Resolved]
  - Neuropathy peripheral [Unknown]
  - Joint swelling [Unknown]
  - Folliculitis [Unknown]
  - Platelet count increased [Unknown]
  - Blood test abnormal [Unknown]
  - Bone pain [Unknown]
  - Skin irritation [Unknown]
  - Burning sensation [Unknown]
  - Malaise [Not Recovered/Not Resolved]
  - Pruritus [Unknown]
  - Rash [Unknown]
  - Unevaluable event [Unknown]
  - Drug intolerance [Unknown]

NARRATIVE: CASE EVENT DATE: 20200201
